FAERS Safety Report 5295452-1 (Version None)
Quarter: 2007Q2

REPORT INFORMATION
  Report Type: 
  Country: None (occurrence: None)
  Receive Date: 20070412
  Receipt Date: 20070402
  Transmission Date: 20071010
  Serious: Yes (Other)
  Sender: FDA-Public Use
  Company Number: GB-PFIZER INC-2007027863

PATIENT
  Age: 72 Year
  Sex: Male

DRUGS (9)
  1. LIPITOR [Suspect]
     Route: 048
  2. QUININE [Concomitant]
  3. NOVOMIX [Concomitant]
  4. INSULATARD [Concomitant]
  5. ESOMEPRAZOLE MAGNESIUM [Concomitant]
  6. CLOPIDOGREL [Concomitant]
  7. EZETIMIBE [Concomitant]
  8. DF118 [Concomitant]
  9. PARACETAMOL [Concomitant]

REACTIONS (19)
  - ALOPECIA [None]
  - ANOREXIA [None]
  - ARTHRALGIA [None]
  - ARTHRITIS [None]
  - ASTHENIA [None]
  - BACK PAIN [None]
  - BLOOD GLUCOSE FLUCTUATION [None]
  - FATIGUE [None]
  - FEELING HOT [None]
  - HYPOAESTHESIA [None]
  - INJECTION SITE BRUISING [None]
  - MUSCLE ATROPHY [None]
  - MUSCLE SPASMS [None]
  - OEDEMA PERIPHERAL [None]
  - PAIN [None]
  - PARAESTHESIA [None]
  - SKIN BURNING SENSATION [None]
  - TENDERNESS [None]
  - WEIGHT DECREASED [None]
